FAERS Safety Report 25752344 (Version 2)
Quarter: 2025Q3

REPORT INFORMATION
  Report Type: Spontaneous
  Country: US (occurrence: US)
  Receive Date: 20250902
  Receipt Date: 20250902
  Transmission Date: 20251020
  Serious: Yes (Other)
  Sender: AMGEN
  Company Number: US-AMGEN-USASP2025170994

PATIENT
  Sex: Male

DRUGS (1)
  1. IMDELLTRA [Suspect]
     Active Substance: TARLATAMAB-DLLE
     Indication: Product used for unknown indication
     Route: 065
     Dates: start: 20250825

REACTIONS (5)
  - Cytokine release syndrome [Unknown]
  - Neurotoxicity [Unknown]
  - Confusional state [Unknown]
  - Neoplasm progression [Unknown]
  - General physical health deterioration [Unknown]

NARRATIVE: CASE EVENT DATE: 20250101
